FAERS Safety Report 18102132 (Version 1)
Quarter: 2020Q3

REPORT INFORMATION
  Report Type: Report from Study
  Country: None (occurrence: DE)
  Receive Date: 20200803
  Receipt Date: 20200803
  Transmission Date: 20201103
  Serious: Yes (Hospitalization)
  Sender: FDA-Public Use
  Company Number: DE-ABBVIE-20K-062-3504663-00

PATIENT
  Age: 54 Year
  Sex: Female

DRUGS (11)
  1. MABTHERA [Concomitant]
     Active Substance: RITUXIMAB
     Dates: start: 201005
  2. ORENCIA [Concomitant]
     Active Substance: ABATACEPT
     Indication: PRODUCT USED FOR UNKNOWN INDICATION
     Dates: start: 201403, end: 201403
  3. MABTHERA [Concomitant]
     Active Substance: RITUXIMAB
     Dates: start: 201207
  4. MABTHERA [Concomitant]
     Active Substance: RITUXIMAB
     Dates: start: 201103
  5. HUMIRA [Suspect]
     Active Substance: ADALIMUMAB
     Indication: RHEUMATOID ARTHRITIS
     Route: 058
     Dates: start: 200801, end: 200909
  6. MABTHERA [Concomitant]
     Active Substance: RITUXIMAB
     Indication: PRODUCT USED FOR UNKNOWN INDICATION
     Dates: start: 200910
  7. MABTHERA [Concomitant]
     Active Substance: RITUXIMAB
     Dates: start: 201009
  8. GOLD [Concomitant]
     Active Substance: GOLD
     Indication: PRODUCT USED FOR UNKNOWN INDICATION
     Dates: start: 20121218
  9. LEFLUNOMIDE. [Concomitant]
     Active Substance: LEFLUNOMIDE
     Indication: PRODUCT USED FOR UNKNOWN INDICATION
     Dates: start: 200612, end: 200806
  10. LEFLUNOMIDE. [Concomitant]
     Active Substance: LEFLUNOMIDE
     Dosage: BETWEEN 18 DEC 2012 23 APR 2013?BETWEEN 23 APR 2013 26 NOV 2013
  11. AZATHIOPRINE. [Concomitant]
     Active Substance: AZATHIOPRINE
     Indication: PRODUCT USED FOR UNKNOWN INDICATION
     Dates: start: 20121218

REACTIONS (2)
  - Aortic aneurysm [Unknown]
  - Gastric ulcer [Unknown]

NARRATIVE: CASE EVENT DATE: 201911
